FAERS Safety Report 13455866 (Version 1)
Quarter: 2017Q2

REPORT INFORMATION
  Report Type: Spontaneous
  Country: US (occurrence: US)
  Receive Date: 20170418
  Receipt Date: 20170418
  Transmission Date: 20170830
  Serious: No
  Sender: FDA-Public Use
  Company Number: None

PATIENT
  Age: 52 Year
  Sex: Female
  Weight: 61.65 kg

DRUGS (5)
  1. ISOVUE [Suspect]
     Active Substance: IOPAMIDOL
     Indication: PAIN MANAGEMENT
     Dates: start: 20170413, end: 20170413
  2. TYLENOL [Concomitant]
     Active Substance: ACETAMINOPHEN
  3. PLAVIX [Concomitant]
     Active Substance: CLOPIDOGREL BISULFATE
  4. FLONASE [Concomitant]
     Active Substance: FLUTICASONE PROPIONATE
  5. TUMERIC PASTE (TUMERIC, BLACK PEPPER, COCONUT OIL, AND WATER) [Concomitant]

REACTIONS (5)
  - Flushing [None]
  - Depressed mood [None]
  - Hyperaesthesia [None]
  - Pain of skin [None]
  - Depression [None]

NARRATIVE: CASE EVENT DATE: 20170415
